FAERS Safety Report 24051459 (Version 3)
Quarter: 2024Q3

REPORT INFORMATION
  Report Type: Spontaneous
  Country: MX (occurrence: None)
  Receive Date: 20240704
  Receipt Date: 20240816
  Transmission Date: 20241017
  Serious: Yes (Other)
  Sender: ASTRAZENECA
  Company Number: 2024A148170

PATIENT
  Sex: Female

DRUGS (2)
  1. VAXZEVRIA [Suspect]
     Active Substance: AZD-1222
     Indication: COVID-19
     Dosage: DOSE UNKNOWN1.0DF UNKNOWN
     Route: 030
     Dates: start: 20211212, end: 20211212
  2. ROSUVASTATIN [Suspect]
     Active Substance: ROSUVASTATIN\ROSUVASTATIN CALCIUM
     Dosage: 20.0MG UNKNOWN
     Route: 048
     Dates: start: 20220203

REACTIONS (15)
  - Infarction [Unknown]
  - Cataract [Unknown]
  - Blindness [Unknown]
  - Glaucoma [Unknown]
  - COVID-19 [Unknown]
  - Retinal ischaemia [Unknown]
  - Ocular discomfort [Unknown]
  - Hypophagia [Unknown]
  - Retinal vein occlusion [Unknown]
  - Intraocular pressure increased [Recovered/Resolved]
  - Lacrimation increased [Unknown]
  - Eye pain [Unknown]
  - Discomfort [Unknown]
  - Feeling abnormal [Unknown]
  - Syncope [Unknown]

NARRATIVE: CASE EVENT DATE: 20220101
